FAERS Safety Report 8902464 (Version 3)
Quarter: 2013Q1

REPORT INFORMATION
  Report Type: Report from Study
  Country: US (occurrence: US)
  Receive Date: 20121112
  Receipt Date: 20130121
  Transmission Date: 20140127
  Serious: Yes (Hospitalization)
  Sender: FDA-Public Use
  Company Number: US-JNJFOC-20121102609

PATIENT
  Age: 67 Year
  Sex: Female
  Weight: 54.43 kg

DRUGS (12)
  1. SIMPONI [Suspect]
     Indication: RHEUMATOID ARTHRITIS
     Route: 058
     Dates: start: 20110330, end: 20120209
  2. OXYCODONE [Concomitant]
     Indication: RHEUMATOID ARTHRITIS
  3. NEURONTIN [Concomitant]
     Route: 048
  4. METHOTREXATE [Concomitant]
     Route: 048
  5. CIMETIDINE [Concomitant]
     Route: 048
  6. LIPITOR [Concomitant]
     Route: 048
  7. ATENOLOL [Concomitant]
     Route: 048
  8. ELAVIL [Concomitant]
     Route: 048
  9. ARTHROTEC [Concomitant]
     Route: 048
  10. FOLIC ACID [Concomitant]
     Route: 048
  11. VITAMIN D [Concomitant]
     Route: 048
  12. NASCOBAL [Concomitant]
     Route: 045

REACTIONS (1)
  - Pneumonia [Recovered/Resolved]
